FAERS Safety Report 19189065 (Version 3)
Quarter: 2021Q2

REPORT INFORMATION
  Report Type: Spontaneous
  Country: AR (occurrence: AR)
  Receive Date: 20210428
  Receipt Date: 20210630
  Transmission Date: 20210717
  Serious: Yes (Other)
  Sender: FDA-Public Use
  Company Number: NVSC2021AR092501

PATIENT
  Age: 41 Year
  Sex: Male

DRUGS (2)
  1. COSENTYX [Suspect]
     Active Substance: SECUKINUMAB
     Dosage: 150 MG, QMO
     Route: 065
  2. COSENTYX [Suspect]
     Active Substance: SECUKINUMAB
     Indication: PSORIATIC ARTHROPATHY
     Dosage: 150 MG, QW (FOUR SECUKINUMAB 150 MG INJECTIONS ONCE WEEKLY)
     Route: 065
     Dates: start: 202012

REACTIONS (5)
  - Skin haemorrhage [Recovered/Resolved]
  - Scratch [Unknown]
  - Skin lesion [Recovered/Resolved]
  - Ventricular arrhythmia [Unknown]
  - Arthralgia [Unknown]
